FAERS Safety Report 4700616-9 (Version None)
Quarter: 2005Q2

REPORT INFORMATION
  Report Type: 
  Country: None (occurrence: None)
  Receive Date: 20050627
  Receipt Date: 20050620
  Transmission Date: 20051028
  Serious: Yes (Hospitalization)
  Sender: FDA-Public Use
  Company Number: 2004003027

PATIENT
  Age: 51 Year
  Sex: Male
  Weight: 76.5 kg

DRUGS (2)
  1. TAHOR (ATORVASTATIN) [Suspect]
     Indication: MIXED HYPERLIPIDAEMIA
     Dosage: 10 MG (10 MG, 1 IN 1 D), ORAL
     Route: 048
     Dates: start: 20010308, end: 20040108
  2. ETIFOXINE (ETIFOXINE0 [Concomitant]

REACTIONS (3)
  - ANXIETY [None]
  - ATROPHY [None]
  - TENDON RUPTURE [None]
